FAERS Safety Report 6642684-3 (Version None)
Quarter: 2010Q1

REPORT INFORMATION
  Report Type: 
  Country: None (occurrence: None)
  Receive Date: 20100316
  Receipt Date: 20100302
  Transmission Date: 20100710
  Serious: Yes (Other)
  Sender: FDA-Public Use
  Company Number: 1000012474

PATIENT
  Age: 96 Year
  Sex: Female
  Weight: 52 kg

DRUGS (6)
  1. MEMANTINE HCL [Suspect]
     Indication: DEMENTIA
     Dosage: 10 MG
     Dates: start: 20100225
  2. AMLOLICH [Concomitant]
  3. ASPIRIN [Concomitant]
  4. CALCIUM SANDOZ [Concomitant]
  5. GLIMEPIRIDE [Concomitant]
  6. PANTOPRAZOL [Concomitant]

REACTIONS (7)
  - APATHY [None]
  - ASTHENIA [None]
  - ATAXIA [None]
  - DEPRESSION [None]
  - MOTOR DYSFUNCTION [None]
  - PSYCHOMOTOR RETARDATION [None]
  - SOMNOLENCE [None]
